FAERS Safety Report 8899012 (Version 2)
Quarter: 2013Q1

REPORT INFORMATION
  Report Type: Report from Study
  Country: JP (occurrence: JP)
  Receive Date: 20121109
  Receipt Date: 20130304
  Transmission Date: 20140127
  Serious: Yes (Hospitalization)
  Sender: FDA-Public Use
  Company Number: JP-009507513-1211JPN002531

PATIENT
  Age: 60 Year
  Sex: Male
  Weight: 99 kg

DRUGS (18)
  1. PEGINTRON [Suspect]
     Indication: CHRONIC HEPATITIS C
     Dosage: 1.5 MICROGRAM PER KILOGRAM, QW
     Route: 058
     Dates: start: 20120820, end: 20120925
  2. REBETOL [Suspect]
     Indication: CHRONIC HEPATITIS C
     Dosage: 1000 MG, QD
     Route: 048
     Dates: start: 20120820, end: 20121001
  3. TELAVIC [Suspect]
     Indication: CHRONIC HEPATITIS C
     Dosage: 2250 MG, QD
     Route: 048
     Dates: start: 20120820, end: 20121001
  4. WARFARIN [Concomitant]
     Indication: ATRIAL FIBRILLATION
     Dosage: 3.5 MG, QD, FORMULATION POR
     Route: 048
     Dates: end: 20120827
  5. WARFARIN [Concomitant]
     Dosage: FORMULATION POR, 3 MG, QD
     Route: 048
     Dates: start: 20120829, end: 20120910
  6. WARFARIN [Concomitant]
     Dosage: 2 MG, QD
     Route: 048
     Dates: start: 20120911, end: 20120917
  7. WARFARIN [Concomitant]
     Dosage: 3 MG, QD,FORMULATION POR
     Route: 048
     Dates: start: 20120918, end: 20120928
  8. WARFARIN [Concomitant]
     Dosage: 3 MG, QD, FORMULATION POR
     Route: 048
     Dates: start: 20121002, end: 20121105
  9. ZYLORIC [Concomitant]
     Indication: HYPERURICAEMIA
     Dosage: 100 MG, QD, FORMULATION POR
     Route: 048
     Dates: end: 20120903
  10. CONIEL [Concomitant]
     Indication: HYPERTENSION
     Dosage: 4 MG, QD, FORMULATION POR
     Route: 048
     Dates: end: 20120824
  11. LOCHOL (FLUVASTATIN SODIUM) [Concomitant]
     Indication: HYPERLIPIDAEMIA
     Dosage: 30 MG, QD
     Route: 048
     Dates: end: 20120903
  12. LOXOPROFEN [Concomitant]
     Indication: PROPHYLAXIS
     Dosage: 60 MG, QD, FORMULATION POR
     Dates: start: 20120820, end: 20121001
  13. LOXOPROFEN [Concomitant]
     Dosage: 60 MG, QD
     Route: 048
     Dates: start: 20121204
  14. MUCOSTA [Concomitant]
     Indication: PROPHYLAXIS
     Dosage: 100 MG, QD, FORMULATION POR
     Route: 048
     Dates: start: 20120820, end: 20121001
  15. MUCOSTA [Concomitant]
     Dosage: 10 MG, QD, FORMULATION POR
     Route: 048
     Dates: start: 20121204
  16. PARIET [Concomitant]
     Indication: PROPHYLAXIS
     Dosage: 10 MG, QD,FORMULATION POR
     Route: 048
     Dates: start: 20120824
  17. CRESTOR [Concomitant]
     Indication: HYPERLIPIDAEMIA
     Dosage: 2.5 MG, QD,FORMULATION POR
     Route: 048
     Dates: start: 20120904
  18. SALOBEL [Concomitant]
     Indication: HYPERURICAEMIA
     Dosage: 100 MG, QD,FORMULATION POR
     Route: 048
     Dates: start: 20120904

REACTIONS (1)
  - Intervertebral disc protrusion [Recovered/Resolved]
